FAERS Safety Report 7752949-X (Version None)
Quarter: 2011Q3

REPORT INFORMATION
  Report Type: 
  Country: None (occurrence: None)
  Receive Date: 20110915
  Receipt Date: 20110914
  Transmission Date: 20111222
  Serious: Yes (Other)
  Sender: FDA-Public Use
  Company Number: US-RB-028064-11

PATIENT
  Age: 26 Year
  Sex: Female

DRUGS (1)
  1. MUCINEX DM [Suspect]
     Dosage: PATIENT LAST TOOK THE PRODUCT ON 14-SEP-2011.
     Route: 048
     Dates: start: 20110910

REACTIONS (6)
  - NERVOUSNESS [None]
  - TREMOR [None]
  - POLLAKIURIA [None]
  - HEART RATE IRREGULAR [None]
  - HALLUCINATION [None]
  - ANXIETY [None]
